FAERS Safety Report 16764927 (Version 1)
Quarter: 2019Q3

REPORT INFORMATION
  Report Type: Spontaneous
  Country: US (occurrence: US)
  Receive Date: 20190903
  Receipt Date: 20190903
  Transmission Date: 20191005
  Serious: No
  Sender: FDA-Public Use
  Company Number: US-BRISTOL-MYERS SQUIBB COMPANY-BMS-2019-085180

PATIENT
  Sex: Male
  Weight: 90.72 kg

DRUGS (1)
  1. ELIQUIS [Suspect]
     Active Substance: APIXABAN
     Indication: THROMBOSIS
     Dosage: 5 MILLIGRAM, BID
     Route: 048
     Dates: start: 201906

REACTIONS (4)
  - Epistaxis [Unknown]
  - Muscle spasms [Unknown]
  - Sinus disorder [Unknown]
  - Headache [Unknown]
